FAERS Safety Report 6832487-9 (Version None)
Quarter: 2010Q3

REPORT INFORMATION
  Report Type: 
  Country: None (occurrence: None)
  Receive Date: 20100712
  Receipt Date: 20100702
  Transmission Date: 20110219
  Serious: Yes (Hospitalization, Other)
  Sender: FDA-Public Use
  Company Number: FR-WATSON-2010-08888

PATIENT
  Age: 14 Year
  Sex: Male

DRUGS (2)
  1. AMLODIPINE BESYLATE [Suspect]
     Indication: HYPERTENSION
     Dosage: 30 MG, DAILY
  2. TACROLIMUS (WATSON LABORATORIES) [Suspect]
     Indication: PROPHYLAXIS AGAINST TRANSPLANT REJECTION
     Dosage: 0.1 MG/KG/DAY

REACTIONS (3)
  - DIARRHOEA [None]
  - INHIBITORY DRUG INTERACTION [None]
  - RENAL FAILURE ACUTE [None]
